FAERS Safety Report 10206169 (Version 1)
Quarter: 2014Q2

REPORT INFORMATION
  Report Type: Spontaneous
  Country: US (occurrence: US)
  Receive Date: 20140530
  Receipt Date: 20140530
  Transmission Date: 20141212
  Serious: No
  Sender: FDA-Public Use
  Company Number: US-009507513-1405USA010863

PATIENT
  Age: 30 Year
  Sex: Female
  Weight: 74.38 kg

DRUGS (4)
  1. NEXPLANON [Suspect]
     Indication: CONTRACEPTION
     Dosage: 68 MG, EVERY THREE YEARS
     Route: 059
     Dates: start: 20131028
  2. OXYCODONE [Concomitant]
  3. FLEXERIL [Concomitant]
  4. VALIUM [Concomitant]

REACTIONS (6)
  - Menorrhagia [Not Recovered/Not Resolved]
  - Muscle spasms [Not Recovered/Not Resolved]
  - Abdominal distension [Not Recovered/Not Resolved]
  - Headache [Not Recovered/Not Resolved]
  - Breast enlargement [Not Recovered/Not Resolved]
  - Device breakage [Not Recovered/Not Resolved]
